FAERS Safety Report 25939776 (Version 1)
Quarter: 2025Q4

REPORT INFORMATION
  Report Type: Spontaneous
  Country: EU (occurrence: EU)
  Receive Date: 20251020
  Receipt Date: 20251020
  Transmission Date: 20260118
  Serious: Yes (Life-Threatening, Hospitalization, Disabling, Other)
  Sender: BRISTOL-MYERS SQUIBB COMPANY
  Company Number: None

PATIENT
  Sex: Male

DRUGS (1)
  1. ZEPOSIA [Suspect]
     Active Substance: OZANIMOD HYDROCHLORIDE
     Indication: Multiple sclerosis
     Dosage: 1 KEER PER DAG

REACTIONS (1)
  - Progressive multifocal leukoencephalopathy [Not Recovered/Not Resolved]
